FAERS Safety Report 20797333 (Version 4)
Quarter: 2023Q2

REPORT INFORMATION
  Report Type: Report from Study
  Country: US (occurrence: US)
  Receive Date: 20220506
  Receipt Date: 20230414
  Transmission Date: 20230721
  Serious: No
  Sender: FDA-Public Use
  Company Number: US-NOVARTISTESTPH-NVSC2022US104553

PATIENT
  Sex: Female

DRUGS (1)
  1. COSENTYX [Suspect]
     Active Substance: SECUKINUMAB
     Indication: Psoriasis
     Dosage: 150 MG, OTHER (ONCE WEEKLY FOR 5 WEEKS AND THEN EVERY 4 WEEKS)
     Route: 058
     Dates: start: 20220311

REACTIONS (1)
  - Injection site pain [Recovered/Resolved]
